FAERS Safety Report 18066727 (Version 2)
Quarter: 2022Q2

REPORT INFORMATION
  Report Type: Spontaneous
  Country: US (occurrence: US)
  Receive Date: 20200724
  Receipt Date: 20220401
  Transmission Date: 20220721
  Serious: No
  Sender: FDA-Public Use
  Company Number: US-PFIZER INC-2020280698

PATIENT
  Age: 80 Year
  Sex: Female
  Weight: 86.18 kg

DRUGS (2)
  1. IBRANCE [Suspect]
     Active Substance: PALBOCICLIB
     Indication: Breast cancer metastatic
     Dosage: 125 MG, CYCLIC (ONE TABLET ONCE DAILY FOR 3 WEEKS ON AND THEN OFF THE MEDICATION FOR ONE WEEK)
     Route: 048
     Dates: start: 20200701
  2. IBRANCE [Suspect]
     Active Substance: PALBOCICLIB
     Dosage: 125 MG,UNK
     Dates: start: 20210709

REACTIONS (7)
  - Abdominal discomfort [Unknown]
  - Contusion [Unknown]
  - Arthralgia [Unknown]
  - Lethargy [Unknown]
  - Diarrhoea [Unknown]
  - Nausea [Unknown]
  - Stress [Unknown]

NARRATIVE: CASE EVENT DATE: 20200701
